FAERS Safety Report 7168327-0 (Version None)
Quarter: 2010Q4

REPORT INFORMATION
  Report Type: 
  Country: None (occurrence: None)
  Receive Date: 20101216
  Receipt Date: 20101208
  Transmission Date: 20110411
  Serious: Yes (Hospitalization, Other)
  Sender: FDA-Public Use
  Company Number: US-ABBOTT-10P-163-0680898-00

PATIENT
  Sex: Male
  Weight: 98.972 kg

DRUGS (5)
  1. SIMCOR [Suspect]
     Indication: HIGH DENSITY LIPOPROTEIN ABNORMAL
     Dosage: 1000/20, 1 IN 1 DAY
     Dates: start: 20090801
  2. RAMIPRIL [Concomitant]
     Indication: BLOOD PRESSURE ABNORMAL
  3. M.V.I. [Concomitant]
     Indication: PRODUCT USED FOR UNKNOWN INDICATION
  4. VITAMIN E [Concomitant]
     Indication: PRODUCT USED FOR UNKNOWN INDICATION
  5. COQ10 [Concomitant]
     Indication: PRODUCT USED FOR UNKNOWN INDICATION

REACTIONS (4)
  - CALCINOSIS [None]
  - FLUSHING [None]
  - HERNIA [None]
  - MOBILITY DECREASED [None]
